FAERS Safety Report 7604391-X (Version None)
Quarter: 2011Q3

REPORT INFORMATION
  Report Type: 
  Country: None (occurrence: None)
  Receive Date: 20110712
  Receipt Date: 20110627
  Transmission Date: 20111222
  Serious: Yes (Other)
  Sender: FDA-Public Use
  Company Number: US-PFIZER INC-2011143319

PATIENT
  Sex: Female
  Weight: 97.5 kg

DRUGS (7)
  1. LIPITOR [Suspect]
     Indication: MYOCARDIAL INFARCTION
     Dosage: 80 MG, DAILY
     Route: 048
     Dates: start: 20101201
  2. SYNTHROID [Concomitant]
     Indication: THYROID DISORDER
     Dosage: 25 UG, DAILY
     Route: 048
  3. ACETYLSALICYLIC ACID [Concomitant]
     Dosage: UNK, DAILY
  4. METOPROLOL [Concomitant]
     Dosage: 25 MG, 2X/DAY
  5. SPIRIVA [Concomitant]
     Indication: CHRONIC OBSTRUCTIVE PULMONARY DISEASE
     Dosage: UNK, DAILY
     Route: 045
  6. LIPITOR [Suspect]
     Indication: BLOOD CHOLESTEROL INCREASED
  7. PLAVIX [Concomitant]
     Indication: MYOCARDIAL INFARCTION
     Dosage: UNK
     Route: 048

REACTIONS (1)
  - CHOKING [None]
